FAERS Safety Report 6428901-3 (Version None)
Quarter: 2009Q4

REPORT INFORMATION
  Report Type: 
  Country: None (occurrence: None)
  Receive Date: 20091104
  Receipt Date: 20091104
  Transmission Date: 20100525
  Serious: Yes (Other)
  Sender: FDA-Public Use
  Company Number: None

PATIENT
  Age: 21 Year
  Sex: Female
  Weight: 47 kg

DRUGS (1)
  1. HYDROCORTISONE VLAERATE TARO [Suspect]
     Indication: BED BUG INFESTATION
     Dosage: TWICE A DAY
     Dates: start: 20091028, end: 20091101

REACTIONS (2)
  - DIZZINESS [None]
  - NAUSEA [None]
